FAERS Safety Report 26140263 (Version 1)
Quarter: 2025Q4

REPORT INFORMATION
  Report Type: Spontaneous
  Country: US (occurrence: None)
  Receive Date: 20251210
  Receipt Date: 20251210
  Transmission Date: 20260118
  Serious: Yes (Life-Threatening, Hospitalization)
  Sender: FDA-CTU
  Company Number: None

PATIENT
  Age: 87 Year
  Sex: Male

DRUGS (1)
  1. CETUXIMAB [Suspect]
     Active Substance: CETUXIMAB
     Indication: Colon cancer metastatic
     Dates: start: 20250807, end: 20250807

REACTIONS (8)
  - Cardio-respiratory arrest [None]
  - Anaphylactic reaction [None]
  - Unresponsive to stimuli [None]
  - Agonal respiration [None]
  - Infusion related reaction [None]
  - Lethargy [None]
  - Fatigue [None]
  - Atrial fibrillation [None]

NARRATIVE: CASE EVENT DATE: 20250807
